FAERS Safety Report 24075317 (Version 1)
Quarter: 2024Q3

REPORT INFORMATION
  Report Type: Spontaneous
  Country: US (occurrence: US)
  Receive Date: 20240710
  Receipt Date: 20240710
  Transmission Date: 20241016
  Serious: Yes (Hospitalization)
  Sender: DOMPE FARMACEUTICI
  Company Number: US-FARMAPROD-202407-2442

PATIENT
  Age: 93 Year
  Sex: Female

DRUGS (4)
  1. OXERVATE [Suspect]
     Active Substance: CENEGERMIN-BKBJ
     Indication: Neurotrophic keratopathy
     Route: 047
     Dates: start: 20240606
  2. DEXTRAN\HYPROMELLOSES [Concomitant]
     Active Substance: DEXTRAN\HYPROMELLOSES
  3. NEBIVOLOL [Concomitant]
     Active Substance: NEBIVOLOL
  4. AMLODIPINE BESYLATE [Concomitant]
     Active Substance: AMLODIPINE BESYLATE

REACTIONS (2)
  - Abdominal operation [Not Recovered/Not Resolved]
  - Product dose omission issue [Unknown]

NARRATIVE: CASE EVENT DATE: 20240623
